FAERS Safety Report 19378245 (Version 7)
Quarter: 2022Q1

REPORT INFORMATION
  Report Type: Report from Study
  Country: US (occurrence: US)
  Receive Date: 20210605
  Receipt Date: 20220211
  Transmission Date: 20220423
  Serious: Yes (Hospitalization)
  Sender: FDA-Public Use
  Company Number: US-NOVARTISPH-NVSC2021US124447

PATIENT
  Sex: Male

DRUGS (1)
  1. KESIMPTA [Suspect]
     Active Substance: OFATUMUMAB
     Indication: Multiple sclerosis
     Dosage: 1.2 ML, QMO (1.2ML/28 DAYS)
     Route: 030
     Dates: start: 202105

REACTIONS (5)
  - Multiple sclerosis relapse [Unknown]
  - Blindness [Unknown]
  - Illness [Unknown]
  - Pain [Unknown]
  - Therapy non-responder [Not Recovered/Not Resolved]
